FAERS Safety Report 24715873 (Version 1)
Quarter: 2024Q4

REPORT INFORMATION
  Report Type: Spontaneous
  Country: RS (occurrence: RS)
  Receive Date: 20241210
  Receipt Date: 20241210
  Transmission Date: 20250115
  Serious: Yes (Hospitalization, Other)
  Sender: AZURITY PHARMACEUTICALS
  Company Number: RS-AZURITY PHARMACEUTICALS, INC.-AZR202411-001209

PATIENT
  Age: 23 Year
  Sex: Female

DRUGS (2)
  1. ERYTHROMYCIN [Suspect]
     Active Substance: ERYTHROMYCIN
     Indication: Antibiotic prophylaxis
     Dosage: 500 MG, TAKEN THREE TIMES A DAY FOR TWO WEEKS
     Route: 065
  2. BROMOCRIPTINE [Suspect]
     Active Substance: BROMOCRIPTINE
     Indication: Lactation inhibition therapy
     Dosage: THREE MONTHS BEFORE THE ONSET OF SYMPTOMS
     Route: 065

REACTIONS (3)
  - Porphyria acute [Recovering/Resolving]
  - Quadriparesis [Recovering/Resolving]
  - Bulbar palsy [Recovering/Resolving]
